FAERS Safety Report 5484822-4 (Version None)
Quarter: 2007Q4

REPORT INFORMATION
  Report Type: 
  Country: None (occurrence: None)
  Receive Date: 20071010
  Receipt Date: 20070927
  Transmission Date: 20080405
  Serious: Yes (Hospitalization, Other)
  Sender: FDA-Public Use
  Company Number: GXKR2007DK08439

PATIENT
  Age: 77 Year
  Sex: Female

DRUGS (1)
  1. CITALOPRAM HYDROBROMIDE [Suspect]
     Indication: DEPRESSION
     Dosage: 10 MG, QD, ORAL
     Route: 048
     Dates: start: 20070815, end: 20070818

REACTIONS (3)
  - DECREASED APPETITE [None]
  - HEADACHE [None]
  - WEIGHT DECREASED [None]
